FAERS Safety Report 10790674 (Version 5)
Quarter: 2015Q2

REPORT INFORMATION
  Report Type: Spontaneous
  Country: US (occurrence: US)
  Receive Date: 20150212
  Receipt Date: 20150612
  Transmission Date: 20150821
  Serious: Yes (Hospitalization, Other)
  Sender: FDA-Public Use
  Company Number: US-PFIZER INC-2015054899

PATIENT
  Age: 57 Year
  Sex: Female
  Weight: 79 kg

DRUGS (14)
  1. FERROUS SULFATE [Concomitant]
     Active Substance: FERROUS SULFATE\FERROUS SULFATE, DRIED
     Indication: BLOOD IRON DECREASED
     Dosage: 325 MG, UNK
  2. LYRICA [Suspect]
     Active Substance: PREGABALIN
     Indication: FIBROMYALGIA
  3. CELEXA [Concomitant]
     Active Substance: CITALOPRAM HYDROBROMIDE
     Indication: MIXED CONNECTIVE TISSUE DISEASE
     Dosage: 40 MG, UNK
  4. VITAMIN A [Concomitant]
     Active Substance: VITAMIN A
     Dosage: 8000 IU, UNK
     Route: 048
  5. CALCIUM [Concomitant]
     Active Substance: CALCIUM
     Dosage: UNK
  6. TREXALL [Concomitant]
     Active Substance: METHOTREXATE SODIUM
     Indication: MIXED CONNECTIVE TISSUE DISEASE
     Dosage: 5 DF, UNK
  7. LYRICA [Suspect]
     Active Substance: PREGABALIN
     Indication: MIXED CONNECTIVE TISSUE DISEASE
     Dosage: 225 MG, 2X/DAY
     Route: 048
     Dates: start: 2007
  8. FOLIC ACID. [Concomitant]
     Active Substance: FOLIC ACID
     Dosage: 1 MG, UNK
  9. MORPHINE [Concomitant]
     Active Substance: MORPHINE
     Indication: MIXED CONNECTIVE TISSUE DISEASE
     Dosage: 15 MG, UNK
  10. RHEUMATREX [Concomitant]
     Active Substance: METHOTREXATE SODIUM
     Indication: MIXED CONNECTIVE TISSUE DISEASE
     Dosage: UNK
  11. PRILOSEC [Concomitant]
     Active Substance: OMEPRAZOLE MAGNESIUM
     Indication: CHEST PAIN
     Dosage: 40 MG, UNK
  12. NORCO [Concomitant]
     Active Substance: ACETAMINOPHEN\HYDROCODONE BITARTRATE
     Indication: JOINT INJURY
     Dosage: 10 OR 7.5
  13. METHOTREXATE [Concomitant]
     Active Substance: METHOTREXATE
     Indication: MIXED CONNECTIVE TISSUE DISEASE
     Dosage: 2.5 A WEEK
  14. CALCIUM WITH VITAMIN D [Concomitant]
     Active Substance: CALCIUM\VITAMIN D
     Dosage: UNK

REACTIONS (4)
  - Disease progression [Not Recovered/Not Resolved]
  - Movement disorder [Unknown]
  - Arthropathy [Recovered/Resolved]
  - Ankle fracture [Not Recovered/Not Resolved]

NARRATIVE: CASE EVENT DATE: 2007
